FAERS Safety Report 11808070 (Version 1)
Quarter: 2015Q4

REPORT INFORMATION
  Report Type: Spontaneous
  Country: US (occurrence: US)
  Receive Date: 20151207
  Receipt Date: 20151207
  Transmission Date: 20160305
  Serious: No
  Sender: FDA-Public Use
  Company Number: US-ENDO PHARMACEUTICALS INC.-201503065

PATIENT
  Age: 74 Year
  Sex: Male
  Weight: 116.68 kg

DRUGS (1)
  1. TESTIM [Suspect]
     Active Substance: TESTOSTERONE
     Route: 062
     Dates: start: 2012

REACTIONS (2)
  - Incorrect product storage [Not Recovered/Not Resolved]
  - Blood testosterone decreased [Not Recovered/Not Resolved]
